FAERS Safety Report 16568783 (Version 1)
Quarter: 2019Q3

REPORT INFORMATION
  Report Type: Spontaneous
  Country: FR (occurrence: FR)
  Receive Date: 20190713
  Receipt Date: 20190713
  Transmission Date: 20191004
  Serious: Yes (Hospitalization)
  Sender: FDA-Public Use
  Company Number: FR-ROCHE-2353719

PATIENT
  Age: 34 Year
  Sex: Female

DRUGS (10)
  1. VALIUM [Suspect]
     Active Substance: DIAZEPAM
     Indication: PSYCHOTIC DISORDER
     Dosage: 1-1-1?DATE OF MOST RECENT DOSE: 30/MAR/2019
     Route: 048
     Dates: start: 20190318
  2. RISPERIDONE. [Suspect]
     Active Substance: RISPERIDONE
     Indication: PSYCHOTIC DISORDER
     Dosage: 0-0-1?DATE OF MOST RECENT DOSE: 28/MAR/2019
     Route: 048
     Dates: start: 20190320
  3. ARIPIPRAZOLE. [Suspect]
     Active Substance: ARIPIPRAZOLE
     Indication: PSYCHOTIC DISORDER
     Dosage: DATE OF MOST RECENT DOSE: 27/MAR/2019
     Route: 048
     Dates: start: 20190304
  4. CLOMIPRAMINE [Suspect]
     Active Substance: CLOMIPRAMINE
     Indication: DEPRESSION
     Dosage: 1-0-0?DATE OF MOST RECENT DOSE: 30/MAR/2019
     Route: 048
     Dates: start: 20190304
  5. CELLCEPT [Concomitant]
     Active Substance: MYCOPHENOLATE MOFETIL\MYCOPHENOLATE MOFETIL HYDROCHLORIDE
     Indication: PROPHYLAXIS AGAINST TRANSPLANT REJECTION
     Dosage: 2-0-2
     Route: 048
     Dates: start: 201710
  6. IMOVANE [Suspect]
     Active Substance: ZOPICLONE
     Indication: SLEEP DISORDER
     Dosage: 0-0-1?DATE OF MOST RECENT DOSE: 30/MAR/2019
     Route: 048
     Dates: start: 20190219
  7. KREDEX [Concomitant]
     Active Substance: CARVEDILOL
     Indication: CARDIAC FAILURE
     Dosage: 1-0-1
     Route: 048
  8. KARDEGIC [Concomitant]
     Active Substance: ASPIRIN DL-LYSINE
     Indication: CARDIOVASCULAR EVENT PROPHYLAXIS
     Dosage: 1-0-0
     Route: 048
  9. ADOPORT [Concomitant]
     Active Substance: TACROLIMUS
     Indication: PROPHYLAXIS AGAINST TRANSPLANT REJECTION
     Route: 048
     Dates: start: 201710, end: 20190525
  10. TERCIAN [CYAMEMAZINE] [Suspect]
     Active Substance: CYAMEMAZINE
     Indication: PSYCHOTIC DISORDER
     Dosage: 10-10-10-30?DATE OF MOST RECENT DOSE: 28/MAR/2019
     Route: 048
     Dates: start: 20190222

REACTIONS (1)
  - Neuroleptic malignant syndrome [Recovered/Resolved]

NARRATIVE: CASE EVENT DATE: 20190328
